FAERS Safety Report 16536946 (Version 7)
Quarter: 2019Q3

REPORT INFORMATION
  Report Type: Spontaneous
  Country: JP (occurrence: JP)
  Receive Date: 20190707
  Receipt Date: 20190816
  Transmission Date: 20191004
  Serious: Yes (Other)
  Sender: FDA-Public Use
  Company Number: PHHY2019JP149764

PATIENT
  Age: 44 Year
  Sex: Female

DRUGS (6)
  1. NEORAL [Suspect]
     Active Substance: CYCLOSPORINE
     Indication: THYMOMA
  2. PREDNISOLONE. [Suspect]
     Active Substance: PREDNISOLONE
     Indication: MYASTHENIA GRAVIS
     Dosage: UNK
     Route: 065
  3. NEORAL [Suspect]
     Active Substance: CYCLOSPORINE
     Indication: MYASTHENIA GRAVIS
     Dosage: 50 MG, UNK
     Route: 048
  4. PREDNISOLONE. [Suspect]
     Active Substance: PREDNISOLONE
     Indication: NEPHROTIC SYNDROME
  5. PREDNISOLONE. [Suspect]
     Active Substance: PREDNISOLONE
     Indication: GLOMERULONEPHRITIS MINIMAL LESION
     Dosage: 50 MG, UNK
     Route: 065
  6. PREDNISOLONE. [Suspect]
     Active Substance: PREDNISOLONE
     Indication: THYMOMA
     Dosage: 10 MG, UNK
     Route: 065

REACTIONS (15)
  - Dysphagia [Unknown]
  - Thrombocytopenia [Unknown]
  - Helicobacter infection [Unknown]
  - Alopecia [Recovering/Resolving]
  - Product use in unapproved indication [Unknown]
  - Thymoma [Unknown]
  - Oedema peripheral [Recovered/Resolved]
  - Diarrhoea [Recovering/Resolving]
  - Disease recurrence [Unknown]
  - Influenza like illness [Recovering/Resolving]
  - Hypogammaglobulinaemia [Unknown]
  - Facial paresis [Recovering/Resolving]
  - Vomiting [Recovering/Resolving]
  - Myasthenia gravis [Unknown]
  - Nephrotic syndrome [Recovering/Resolving]
